FAERS Safety Report 7130254-2 (Version None)
Quarter: 2010Q4

REPORT INFORMATION
  Report Type: 
  Country: None (occurrence: None)
  Receive Date: 20101201
  Receipt Date: 20101123
  Transmission Date: 20110411
  Serious: Yes (Hospitalization, Other)
  Sender: FDA-Public Use
  Company Number: PHHY2010US66462

PATIENT
  Sex: Female

DRUGS (8)
  1. TOBI [Suspect]
     Indication: CYSTIC FIBROSIS
     Dosage: 300 MG, BID
  2. BACTRIM [Suspect]
     Indication: COUGH
     Dosage: UNK
     Dates: start: 20101120
  3. AZITHROMYCIN [Concomitant]
     Dosage: 3 TIMES A WEEK
     Route: 048
  4. MINOCYCLINE [Concomitant]
     Dosage: 100 MG, BID
  5. PULMOZYME [Concomitant]
     Indication: CYSTIC FIBROSIS
  6. LACTULOSE [Concomitant]
     Indication: CONSTIPATION
  7. HYZAAR [Concomitant]
     Indication: HYPERTENSION
  8. ZOCOR [Concomitant]

REACTIONS (7)
  - ANXIETY [None]
  - DIZZINESS [None]
  - DRUG HYPERSENSITIVITY [None]
  - INSOMNIA [None]
  - MUSCULAR WEAKNESS [None]
  - NAUSEA [None]
  - PSEUDOMONAS INFECTION [None]
